FAERS Safety Report 8539971-0 (Version None)
Quarter: 2012Q3

REPORT INFORMATION
  Report Type: 
  Country: None (occurrence: None)
  Receive Date: 20120726
  Receipt Date: 20120719
  Transmission Date: 20120928
  Serious: Yes (Other)
  Sender: FDA-Public Use
  Company Number: PHHY2012DE062513

PATIENT
  Age: 53 Year
  Sex: Male

DRUGS (3)
  1. TOFACITINIB [Suspect]
     Indication: IMMUNOSUPPRESSION
  2. METHOTREXATE [Suspect]
     Indication: RHEUMATOID ARTHRITIS
     Dosage: UNK
     Dates: start: 20080101
  3. PREDNISOLONE [Suspect]
     Indication: RHEUMATOID ARTHRITIS
     Dosage: UNK
     Dates: start: 20080101

REACTIONS (5)
  - OEDEMA PERIPHERAL [None]
  - WEIGHT INCREASED [None]
  - GLOMERULONEPHRITIS MEMBRANOUS [None]
  - NEPHROTIC SYNDROME [None]
  - SMALL CELL LUNG CANCER STAGE UNSPECIFIED [None]
